FAERS Safety Report 10716042 (Version 1)
Quarter: 2015Q1

REPORT INFORMATION
  Report Type: Report from Study
  Country: US (occurrence: None)
  Receive Date: 20150109
  Receipt Date: 20150109
  Transmission Date: 20150721
  Serious: Yes (Hospitalization, Disabling)
  Sender: FDA-Public Use
  Company Number: 2013IPUSA00021

PATIENT
  Age: 70 Year
  Sex: Male
  Weight: 82.3 kg

DRUGS (16)
  1. MULTIVITAMIN)ASCORBIC ACID, CALCIUM PANTOPTHENATE, ERGOCALCIFEROL, NICOTINAMIDE, PYRIDOXINE HYDROCHLORIDE, RETINOL, RIBOFLAVIN, THIAMINE HYDROCHLORIDE) [Concomitant]
  2. NASONEX(MOMETASONE FUROATE) [Concomitant]
  3. XGEVA(DENOSUMAB) [Concomitant]
  4. PREDNISONE. [Concomitant]
     Active Substance: PREDNISONE
  5. CIMETIDINE [Concomitant]
     Active Substance: CIMETIDINE
  6. CALCIUM WITH VITAMIN D (CALCIUM CARBONATE, COLECALCIFEROL) [Concomitant]
  7. ENZALUTAMIDE(ENZALUTAMIDE) [Concomitant]
  8. ABIRATERONE ACETATE(ABIRATERONE ACETATE) [Concomitant]
  9. AMLODIPINE(MALODIPINE) [Concomitant]
  10. ASPIRIN(ACETYLSALICYLIC ACID) [Concomitant]
     Active Substance: ASPIRIN
  11. OMEPRAZOLE(OMEPRAZOLE) [Concomitant]
     Active Substance: OMEPRAZOLE
  12. PHAZYME(SIMETICONE) [Concomitant]
  13. SIPULEUCEL-T (SIPULEUCEL-T) SUSPENSION [Suspect]
     Active Substance: SIPULEUCEL-T
     Indication: PROSTATE CANCER METASTATIC
     Dosage: SINGLE
     Route: 042
     Dates: start: 20120914, end: 20120914
  14. LEVOTHYROXINE(LEVOTHYROXINE) [Concomitant]
  15. ATORVASTATIN(ATORVASTATIN) [Concomitant]
  16. CLARITIN-D(LORATADINE, PSEUDOEPHEDRING SULFATE) [Concomitant]

REACTIONS (1)
  - Cerebrovascular accident [None]

NARRATIVE: CASE EVENT DATE: 20130912
